FAERS Safety Report 7826167-0 (Version None)
Quarter: 2011Q4

REPORT INFORMATION
  Report Type: 
  Country: None (occurrence: None)
  Receive Date: 20111020
  Receipt Date: 20111011
  Transmission Date: 20120403
  Serious: Yes (Other)
  Sender: FDA-Public Use
  Company Number: FR-AMGEN-FRASP2011053170

PATIENT
  Age: 60 Year
  Sex: Male

DRUGS (4)
  1. ANTIHISTAMINES [Concomitant]
  2. ENBREL [Suspect]
     Indication: ANKYLOSING SPONDYLITIS
     Dosage: UNK
     Dates: start: 20090101, end: 20110101
  3. TRAMADOL HCL [Suspect]
     Dosage: UNK
     Dates: end: 20110101
  4. NSAID'S [Concomitant]

REACTIONS (2)
  - TINNITUS [None]
  - DEMYELINATION [None]
